FAERS Safety Report 26121487 (Version 1)
Quarter: 2025Q4

REPORT INFORMATION
  Report Type: Spontaneous
  Country: US (occurrence: None)
  Receive Date: 20251203
  Receipt Date: 20251203
  Transmission Date: 20260118
  Serious: Yes (Other)
  Sender: FDA-CTU
  Company Number: None

PATIENT
  Age: 16 Year
  Sex: Female
  Weight: 50.7 kg

DRUGS (1)
  1. LEXAPRO [Suspect]
     Active Substance: ESCITALOPRAM OXALATE
     Indication: Depression
     Dates: start: 20251104, end: 20251120

REACTIONS (9)
  - Decreased appetite [None]
  - Nausea [None]
  - Diarrhoea [None]
  - Abdominal pain [None]
  - Headache [None]
  - Dehydration [None]
  - Blood glucose increased [None]
  - Serotonin syndrome [None]
  - Therapy interrupted [None]

NARRATIVE: CASE EVENT DATE: 20251120
